FAERS Safety Report 20920710 (Version 1)
Quarter: 2022Q2

REPORT INFORMATION
  Report Type: Spontaneous
  Country: CN (occurrence: CN)
  Receive Date: 20220606
  Receipt Date: 20220606
  Transmission Date: 20220721
  Serious: Yes (Hospitalization, Other)
  Sender: FDA-Public Use
  Company Number: CN-PFIZER INC-202200784937

PATIENT
  Age: 51 Year
  Sex: Male
  Weight: 62 kg

DRUGS (4)
  1. CYTARABINE [Suspect]
     Active Substance: CYTARABINE
     Indication: Acute leukaemia
     Dosage: 0.1 G, 1X/3 DAYS
     Dates: start: 20220501, end: 20220504
  2. ACLARUBICIN HYDROCHLORIDE [Suspect]
     Active Substance: ACLARUBICIN HYDROCHLORIDE
     Indication: Acute leukaemia
     Dosage: 20 MG, 1X/DAY
     Route: 041
     Dates: start: 20220501, end: 20220504
  3. SODIUM CHLORIDE [Concomitant]
     Active Substance: SODIUM CHLORIDE
     Indication: Vehicle solution use
     Dosage: 192 ML, 1X/3 DAYS
     Dates: start: 20220501, end: 20220504
  4. SODIUM CHLORIDE [Concomitant]
     Active Substance: SODIUM CHLORIDE
     Indication: Vehicle solution use
     Dosage: 100 ML, 1X/DAY
     Route: 041
     Dates: start: 20220501, end: 20220504

REACTIONS (2)
  - Myelosuppression [Recovering/Resolving]
  - Epigastric discomfort [Unknown]

NARRATIVE: CASE EVENT DATE: 20220511
